FAERS Safety Report 9745526 (Version 1)
Quarter: 2013Q4

REPORT INFORMATION
  Report Type: Spontaneous
  Country: US (occurrence: US)
  Receive Date: 20131211
  Receipt Date: 20131211
  Transmission Date: 20140711
  Serious: No
  Sender: FDA-Public Use
  Company Number: US-BIOGENIDEC-2013BI092549

PATIENT
  Age: 52 Year
  Sex: Male

DRUGS (13)
  1. TECFIDERA [Suspect]
     Indication: MULTIPLE SCLEROSIS
     Route: 048
     Dates: start: 20130913
  2. TECFIDERA [Suspect]
     Indication: MULTIPLE SCLEROSIS
     Route: 048
  3. AMITRIPTYLINE [Concomitant]
  4. ANDROGEL [Concomitant]
  5. FLEXERIL [Concomitant]
  6. LIPITOR [Concomitant]
  7. LISINOPRIL [Concomitant]
  8. PRILOSEC [Concomitant]
  9. THALITONE [Concomitant]
  10. VIAGRA [Concomitant]
  11. VIBRYD [Concomitant]
     Indication: DEPRESSION
  12. VITAMIN D [Concomitant]
  13. FLOMAX [Concomitant]

REACTIONS (3)
  - Skin warm [Recovered/Resolved]
  - Erythema [Recovered/Resolved]
  - Flushing [Recovered/Resolved]
